FAERS Safety Report 13874094 (Version 2)
Quarter: 2017Q3

REPORT INFORMATION
  Report Type: Report from Study
  Country: US (occurrence: US)
  Receive Date: 20170816
  Receipt Date: 20170908
  Transmission Date: 20171127
  Serious: Yes (Hospitalization, Other)
  Sender: FDA-Public Use
  Company Number: US-TESARO, INC-US-2017TSO01839

PATIENT

DRUGS (4)
  1. ZEJULA [Suspect]
     Active Substance: NIRAPARIB
     Indication: OVARIAN CANCER
     Dosage: 300 MG, QD
     Route: 048
     Dates: start: 20170710, end: 2017
  2. ZEJULA [Suspect]
     Active Substance: NIRAPARIB
     Dosage: 200 MG, QD
     Route: 048
     Dates: start: 20170814
  3. ZOFRAN [Concomitant]
     Active Substance: ONDANSETRON HYDROCHLORIDE
  4. MAGNESIUM [Concomitant]
     Active Substance: MAGNESIUM

REACTIONS (12)
  - Renal impairment [Unknown]
  - Nausea [Unknown]
  - Urinary tract infection [Recovered/Resolved]
  - Insomnia [Not Recovered/Not Resolved]
  - Constipation [Recovering/Resolving]
  - Dry skin [Unknown]
  - Blood creatinine abnormal [Unknown]
  - Dehydration [Unknown]
  - Restless legs syndrome [Not Recovered/Not Resolved]
  - Blood cholesterol increased [Unknown]
  - Vomiting [Unknown]
  - Dyspnoea [Not Recovered/Not Resolved]

NARRATIVE: CASE EVENT DATE: 201707
